FAERS Safety Report 5767025-5 (Version None)
Quarter: 2008Q2

REPORT INFORMATION
  Report Type: 
  Country: None (occurrence: None)
  Receive Date: 20080609
  Receipt Date: 20080530
  Transmission Date: 20081010
  Serious: Yes (Life-Threatening, Hospitalization)
  Sender: FDA-Public Use
  Company Number: TCI2007A05728

PATIENT
  Age: 74 Year
  Sex: Female

DRUGS (8)
  1. LANSOPRAZOLE [Suspect]
     Indication: GASTRITIS ATROPHIC
     Dosage: 15 MG (15 MG,1 IN 1 D)
     Route: 048
     Dates: start: 20070704, end: 20070920
  2. LANSOPRAZOLE [Suspect]
     Indication: HIATUS HERNIA
     Dosage: 15 MG (15 MG,1 IN 1 D)
     Route: 048
     Dates: start: 20070704, end: 20070920
  3. PANSPORIN (CEFOTIAM HYDROCHLORIDE) (INJECTION) [Concomitant]
  4. THYRADIN POWDER (THYROID) (POWDER) [Concomitant]
  5. JOLETHIN (IODOLECITHIN) (TABLETS) [Concomitant]
  6. SELBEX (TEPRENONE) (FINE GRANULES) [Concomitant]
  7. MECLOCELIN (AMBROXOL HYDROCHLORIDE)(TABLETS) [Concomitant]
  8. INDERAL (PROPRANOLOL HYDROCHLORIDE) (TABLETS) [Concomitant]

REACTIONS (14)
  - BACTERIAL INFECTION [None]
  - CONVULSION [None]
  - DRUG RASH WITH EOSINOPHILIA AND SYSTEMIC SYMPTOMS [None]
  - ENANTHEMA [None]
  - ERYTHEMA [None]
  - LOSS OF CONSCIOUSNESS [None]
  - LYMPHADENOPATHY [None]
  - MUSCULAR WEAKNESS [None]
  - NEPHROGENIC ANAEMIA [None]
  - PHARYNGOLARYNGEAL PAIN [None]
  - PYREXIA [None]
  - RENAL FAILURE ACUTE [None]
  - RENAL IMPAIRMENT [None]
  - RHABDOMYOLYSIS [None]
